FAERS Safety Report 10137735 (Version 1)
Quarter: 2014Q2

REPORT INFORMATION
  Report Type: Spontaneous
  Country: US (occurrence: None)
  Receive Date: 20140428
  Receipt Date: 20140428
  Transmission Date: 20141212
  Serious: Yes (Other)
  Sender: FDA-Public Use
  Company Number: None

PATIENT
  Age: 19 Year
  Sex: Female
  Weight: 54.43 kg

DRUGS (2)
  1. CONCERTA (GENERIC) [Suspect]
     Indication: ATTENTION DEFICIT/HYPERACTIVITY DISORDER
     Dosage: 2 OR 3 MONTHS 2 ONCE DAILY TAKEN BY MOUTH
     Route: 048
  2. CONCERTA (GENERIC) [Suspect]
     Dosage: 2 OR 3 MONTHS 2 ONCE DAILY TAKEN BY MOUTH
     Route: 048

REACTIONS (8)
  - No therapeutic response [None]
  - Depressed mood [None]
  - Product substitution issue [None]
  - Impaired work ability [None]
  - Educational problem [None]
  - Unevaluable event [None]
  - Personality change [None]
  - Product substitution issue [None]
